FAERS Safety Report 16114551 (Version 5)
Quarter: 2019Q4

REPORT INFORMATION
  Report Type: Spontaneous
  Country: FR (occurrence: FR)
  Receive Date: 20190325
  Receipt Date: 20191011
  Transmission Date: 20200122
  Serious: Yes (Life-Threatening, Hospitalization, Other)
  Sender: FDA-Public Use
  Company Number: FR-PFIZER INC-2019123943

PATIENT
  Age: 56 Year
  Sex: Female
  Weight: 97 kg

DRUGS (10)
  1. SALAZOPYRINE [Suspect]
     Active Substance: SULFASALAZINE
     Indication: SPONDYLOARTHROPATHY
     Dosage: 500 MG, 1X/DAY
     Route: 048
     Dates: start: 20190103, end: 20190109
  2. SALAZOPYRINE [Suspect]
     Active Substance: SULFASALAZINE
     Dosage: 2000 MG, DAILY
     Route: 048
     Dates: start: 20190117, end: 20190123
  3. VERAPAMIL HYDROCHLOIRDE [Concomitant]
     Active Substance: VERAPAMIL HYDROCHLORIDE
     Indication: HYPERTENSION
     Dosage: 240 MG, 1X/DAY
     Route: 048
     Dates: start: 1995, end: 201902
  4. DOLIPRANE [Concomitant]
     Active Substance: ACETAMINOPHEN
     Indication: SPONDYLOARTHROPATHY
     Dosage: 1 G, UNK
     Dates: start: 2009
  5. SALAZOPYRINE [Suspect]
     Active Substance: SULFASALAZINE
     Dosage: 3000 MG, DAILY
     Route: 048
     Dates: start: 20190124, end: 20190130
  6. PARACETAMOL [Concomitant]
     Active Substance: ACETAMINOPHEN
     Dosage: 1 G, UNK
     Dates: start: 2009
  7. SALAZOPYRINE [Suspect]
     Active Substance: SULFASALAZINE
     Dosage: 1000 MG, DAILY
     Route: 048
     Dates: start: 20190110, end: 20190116
  8. SALAZOPYRINE [Suspect]
     Active Substance: SULFASALAZINE
     Dosage: 4000 MG, DAILY
     Dates: start: 20190131, end: 20190201
  9. ZAMUDOL [Concomitant]
     Active Substance: TRAMADOL HYDROCHLORIDE
     Indication: SPONDYLOARTHROPATHY
     Dosage: 50 MG, 2X/DAY
     Route: 048
     Dates: start: 2018
  10. PREDNISONE. [Concomitant]
     Active Substance: PREDNISONE
     Indication: SPONDYLOARTHROPATHY
     Dosage: 20 MG, 1X/DAY
     Route: 048
     Dates: start: 20190130, end: 201902

REACTIONS (11)
  - Conjunctivitis [Not Recovered/Not Resolved]
  - Photophobia [Not Recovered/Not Resolved]
  - Fatigue [Unknown]
  - Decubitus ulcer [Not Recovered/Not Resolved]
  - Loss of personal independence in daily activities [Unknown]
  - Toxic epidermal necrolysis [Recovered/Resolved with Sequelae]
  - Keratitis [Not Recovered/Not Resolved]
  - Dry eye [Unknown]
  - Hepatocellular injury [Unknown]
  - Amylase increased [Recovered/Resolved]
  - Peripheral sensorimotor neuropathy [Not Recovered/Not Resolved]

NARRATIVE: CASE EVENT DATE: 20190128
